FAERS Safety Report 16683425 (Version 1)
Quarter: 2019Q3

REPORT INFORMATION
  Report Type: Spontaneous
  Country: US (occurrence: US)
  Receive Date: 20190807
  Receipt Date: 20190807
  Transmission Date: 20191007
  Serious: No
  Sender: FDA-Public Use
  Company Number: None

PATIENT
  Age: 40 Year
  Sex: Female
  Weight: 122.47 kg

DRUGS (1)
  1. MIRENA [Suspect]
     Active Substance: LEVONORGESTREL

REACTIONS (5)
  - Vaginal haemorrhage [None]
  - Pain [None]
  - Loss of libido [None]
  - Dysmenorrhoea [None]
  - Complication associated with device [None]

NARRATIVE: CASE EVENT DATE: 20190409
